FAERS Safety Report 8068495-2 (Version None)
Quarter: 2012Q1

REPORT INFORMATION
  Report Type: 
  Country: None (occurrence: None)
  Receive Date: 20120124
  Receipt Date: 20111028
  Transmission Date: 20120608
  Serious: No
  Sender: FDA-Public Use
  Company Number: US-AMGEN-USASP2011056049

PATIENT
  Sex: Female

DRUGS (8)
  1. MAXIDENE [Concomitant]
     Dosage: UNK UNK, QOD
  2. PROLIA [Suspect]
     Indication: PRODUCT USED FOR UNKNOWN INDICATION
     Dosage: 60 MG, Q6MO
  3. CENTRUM SILVER                     /01292501/ [Concomitant]
  4. PRILOSEC [Concomitant]
  5. ZOCOR [Concomitant]
  6. CALCIUM [Concomitant]
  7. ASPIRIN [Concomitant]
  8. TRAMADOL HCL [Concomitant]
     Dosage: UNK UNK, PRN

REACTIONS (4)
  - ABNORMAL FAECES [None]
  - BLOOD PRESSURE DECREASED [None]
  - ABDOMINAL PAIN [None]
  - ERYTHEMA [None]
